FAERS Safety Report 5164027-7 (Version None)
Quarter: 2006Q4

REPORT INFORMATION
  Report Type: 
  Country: None (occurrence: None)
  Receive Date: 20061204
  Receipt Date: 20060427
  Transmission Date: 20070319
  Serious: Yes (Hospitalization)
  Sender: FDA-Public Use
  Company Number: US-ROXANE LABORATORIES, INC-2006-DE-02161GD

PATIENT
  Age: 33 Year
  Sex: Female

DRUGS (6)
  1. PREDNISONE TAB [Suspect]
     Indication: URTICARIA PAPULAR
     Dosage: TAPERED DOSE (60 MG DAILY AT THE TIME OF ADMISSION)
  2. PREDNISONE TAB [Suspect]
     Indication: PRURITUS
  3. POVIDONE IODINE [Suspect]
     Indication: INFECTION PROPHYLAXIS
     Dosage: 3 SEQUENTIAL SWABS IMPREGNATED WITH POVIDONE-IODINE
  4. BUPIVACAINE [Concomitant]
     Indication: LABOUR PAIN
     Dosage: INCREMENTAL INJECTION OF BUPIVACAINE 0.25% (10 ML) , FOLLOWED BY AN INFUSION OF 0.0625% BUPIVACAINE
  5. FENTANYL [Concomitant]
     Indication: LABOUR PAIN
     Dosage: INCREMENTAL INJECTION OF 50 MCG FENTANYL, FOLLOWED BY AN INFUSION OF  2 MCG/ML FENTANYL
  6. EPINEPHRINE [Concomitant]
     Dosage: INFUSION OF 1.25 MCG/ML

REACTIONS (20)
  - BACK PAIN [None]
  - BACTERIAL INFECTION [None]
  - BLOOD CULTURE POSITIVE [None]
  - BLOOD PRESSURE INCREASED [None]
  - CATHETER RELATED COMPLICATION [None]
  - CATHETER SITE PAIN [None]
  - CULTURE WOUND POSITIVE [None]
  - DRUG EXPOSURE DURING PREGNANCY [None]
  - EXTRADURAL ABSCESS [None]
  - HAEMOCONCENTRATION [None]
  - IMMUNOSUPPRESSION [None]
  - INFLAMMATION [None]
  - INFUSION SITE MASS [None]
  - PLATELET COUNT INCREASED [None]
  - POLYMORPHIC ERUPTION OF PREGNANCY [None]
  - PRE-ECLAMPSIA [None]
  - SENSORY DISTURBANCE [None]
  - SPINAL CORD COMPRESSION [None]
  - STAPHYLOCOCCAL INFECTION [None]
  - UTERINE CONTRACTIONS ABNORMAL [None]
